FAERS Safety Report 10994187 (Version 1)
Quarter: 2015Q2

REPORT INFORMATION
  Report Type: Spontaneous
  Country: US (occurrence: None)
  Receive Date: 20150406
  Receipt Date: 20150406
  Transmission Date: 20150821
  Serious: Yes (Hospitalization)
  Sender: FDA-Public Use
  Company Number: None

PATIENT
  Age: 68 Year
  Sex: Male
  Weight: 97.5 kg

DRUGS (1)
  1. AMIODARONE [Suspect]
     Active Substance: AMIODARONE
     Indication: TOXICITY TO VARIOUS AGENTS
     Dosage: 400 MG, EVERY DAY, PO
     Route: 048
     Dates: start: 20130310, end: 20130919

REACTIONS (17)
  - Toxicity to various agents [None]
  - Transaminases increased [None]
  - Pulmonary mass [None]
  - Dizziness [None]
  - Restless legs syndrome [None]
  - Ventricular tachycardia [None]
  - Coronary artery disease [None]
  - Gastrooesophageal reflux disease [None]
  - Dyspnoea [None]
  - Chronic obstructive pulmonary disease [None]
  - Hyperlipidaemia [None]
  - Liver function test abnormal [None]
  - Carbon monoxide diffusing capacity decreased [None]
  - Sleep apnoea syndrome [None]
  - Unevaluable event [None]
  - Cardiac failure congestive [None]
  - Tachycardia [None]

NARRATIVE: CASE EVENT DATE: 20150120
